FAERS Safety Report 17362603 (Version 2)
Quarter: 2020Q1

REPORT INFORMATION
  Report Type: Spontaneous
  Country: US (occurrence: US)
  Receive Date: 20200203
  Receipt Date: 20200220
  Transmission Date: 20200409
  Serious: Yes (Disabling)
  Sender: FDA-Public Use
  Company Number: US-ALKERMES INC.-ALK-2020-000426

PATIENT
  Age: 33 Year
  Sex: Female

DRUGS (4)
  1. ARISTADA [Suspect]
     Active Substance: ARIPIPRAZOLE LAUROXIL
     Dosage: 1064 MG, Q2MO
     Route: 030
  2. ARISTADA [Suspect]
     Active Substance: ARIPIPRAZOLE LAUROXIL
     Dosage: UNK
     Route: 030
     Dates: start: 2012, end: 2012
  3. ARISTADA [Suspect]
     Active Substance: ARIPIPRAZOLE LAUROXIL
     Indication: SCHIZOPHRENIA
     Dosage: 1064 MG, Q2MO
     Route: 030
     Dates: start: 20191211
  4. ARISTADA [Suspect]
     Active Substance: ARIPIPRAZOLE LAUROXIL
     Dosage: 1064 MG, Q2MO
     Route: 030
     Dates: start: 20170814, end: 20170814

REACTIONS (1)
  - Back injury [Not Recovered/Not Resolved]

NARRATIVE: CASE EVENT DATE: 2015
